FAERS Safety Report 21931413 (Version 1)
Quarter: 2023Q1

REPORT INFORMATION
  Report Type: Spontaneous
  Country: US (occurrence: None)
  Receive Date: 20230130
  Receipt Date: 20230130
  Transmission Date: 20230418
  Serious: No
  Sender: FDA-Public Use
  Company Number: None

PATIENT
  Age: 73 Year
  Sex: Female
  Weight: 82.28 kg

DRUGS (21)
  1. LENALIDOMIDE [Suspect]
     Active Substance: LENALIDOMIDE
     Indication: Plasma cell myeloma
     Dosage: OTHER FREQUENCY : 21D ON 7D OFF;?
     Route: 048
     Dates: start: 202107
  2. BACLOFEN [Concomitant]
  3. CARVEDILOL [Concomitant]
     Active Substance: CARVEDILOL
  4. CULTURELLE DIGESTIVE HEALTH [Concomitant]
  5. CYANOCOBALAMIN [Concomitant]
  6. ECOTRIN LOW [Concomitant]
  7. ELDERTONIC [Concomitant]
  8. ENALAPRIL [Concomitant]
  9. FERROUS SULFATE [Concomitant]
  10. FEXOFENADINE [Concomitant]
  11. FLUTICASONE [Concomitant]
  12. GLIMEPIRIDE [Concomitant]
  13. IMODIUM AD [Concomitant]
  14. LEVOTHYROXINE [Concomitant]
  15. MAGOX [Concomitant]
  16. MEGESTROL [Concomitant]
  17. PROTONIX [Concomitant]
  18. SIMVASTATIN [Concomitant]
  19. SUCRALFATE [Concomitant]
  20. TRAMADOL VITAMIN D3 [Concomitant]
  21. ZOFRAN [Concomitant]

REACTIONS (1)
  - Cerebrovascular accident [None]
